FAERS Safety Report 4866768-5 (Version None)
Quarter: 2005Q4

REPORT INFORMATION
  Report Type: 
  Country: None (occurrence: None)
  Receive Date: 20051221
  Receipt Date: 20051213
  Transmission Date: 20060501
  Serious: Yes (Hospitalization, Other)
  Sender: FDA-Public Use
  Company Number: 2005-12-0604

PATIENT
  Age: 50 Year
  Sex: Male
  Weight: 61 kg

DRUGS (1)
  1. INTRON A [Suspect]
     Indication: HEPATITIS C
     Dosage: 3 MIU INTRAMUSCULAR
     Route: 030
     Dates: start: 20040122, end: 20051208

REACTIONS (2)
  - CEREBRAL HAEMORRHAGE [None]
  - DEPRESSED LEVEL OF CONSCIOUSNESS [None]
